FAERS Safety Report 24318666 (Version 1)
Quarter: 2024Q3

REPORT INFORMATION
  Report Type: Spontaneous
  Country: AU (occurrence: AU)
  Receive Date: 20240913
  Receipt Date: 20240913
  Transmission Date: 20241016
  Serious: Yes (Hospitalization)
  Sender: BOEHRINGER INGELHEIM
  Company Number: AU-Komodo Health-a23aa0000034MQ1AAM

PATIENT
  Sex: Male

DRUGS (1)
  1. JARDIANCE [Suspect]
     Active Substance: EMPAGLIFLOZIN
     Indication: Product used for unknown indication

REACTIONS (2)
  - Device occlusion [Unknown]
  - Arterial occlusive disease [Not Recovered/Not Resolved]

NARRATIVE: CASE EVENT DATE: 20240101
